FAERS Safety Report 20291208 (Version 1)
Quarter: 2022Q1

REPORT INFORMATION
  Report Type: Report from Study
  Country: MX (occurrence: MX)
  Receive Date: 20220104
  Receipt Date: 20220104
  Transmission Date: 20220424
  Serious: Yes (Hospitalization, Other)
  Sender: FDA-Public Use
  Company Number: MX-NOVARTISPH-NVSC2021MX300653

PATIENT
  Sex: Female
  Weight: 76 kg

DRUGS (3)
  1. HYDROCHLOROTHIAZIDE\VALSARTAN [Suspect]
     Active Substance: HYDROCHLOROTHIAZIDE\VALSARTAN
     Indication: Hypertension
     Dosage: 1 DOSAGE FORM, QD (160/12.5MG)
     Route: 048
     Dates: start: 2007, end: 202110
  2. METICORTEN [Concomitant]
     Active Substance: PREDNISONE
     Indication: Respiratory tract inflammation
     Dosage: 1 DOSAGE FORM, QD (20MG)
     Route: 048
     Dates: start: 20211228
  3. METICORTEN [Concomitant]
     Active Substance: PREDNISONE
     Indication: Pneumonitis

REACTIONS (22)
  - Salmonellosis [Recovered/Resolved]
  - Salmonellosis [Recovered/Resolved]
  - Pneumonia [Recovering/Resolving]
  - Neoplasm malignant [Recovered/Resolved]
  - Osteoarthritis [Unknown]
  - Nasal disorder [Unknown]
  - Sputum discoloured [Unknown]
  - Accident [Unknown]
  - Joint injury [Recovered/Resolved]
  - Joint swelling [Unknown]
  - Pain [Unknown]
  - Blood pressure increased [Unknown]
  - Stress [Not Recovered/Not Resolved]
  - Scar [Unknown]
  - Hepatic steatosis [Recovering/Resolving]
  - Helicobacter infection [Recovered/Resolved]
  - Weight increased [Recovering/Resolving]
  - Influenza [Unknown]
  - Cough [Unknown]
  - Bronchitis [Unknown]
  - Dyspepsia [Unknown]
  - Drug ineffective [Unknown]

NARRATIVE: CASE EVENT DATE: 20070101
